FAERS Safety Report 14113169 (Version 1)
Quarter: 2017Q4

REPORT INFORMATION
  Report Type: Spontaneous
  Country: US (occurrence: None)
  Receive Date: 20171020
  Receipt Date: 20171020
  Transmission Date: 20180321
  Serious: Yes (Hospitalization)
  Sender: FDA-Public Use
  Company Number: None

PATIENT
  Age: 73 Year
  Sex: Male

DRUGS (1)
  1. DIVALPROEX [Suspect]
     Active Substance: DIVALPROEX SODIUM
     Indication: AGITATION
     Route: 048
     Dates: start: 20170206, end: 20170715

REACTIONS (4)
  - Thrombocytopenia [None]
  - Asthenia [None]
  - Gait disturbance [None]
  - Pyrexia [None]

NARRATIVE: CASE EVENT DATE: 20170712
